FAERS Safety Report 9485457 (Version 1)
Quarter: 2013Q3

REPORT INFORMATION
  Report Type: Spontaneous
  Country: US (occurrence: US)
  Receive Date: 20130829
  Receipt Date: 20130829
  Transmission Date: 20140515
  Serious: Yes (Hospitalization, Other)
  Sender: FDA-Public Use
  Company Number: US-BIOGENIDEC-2013BI078568

PATIENT
  Sex: Female

DRUGS (17)
  1. TYSABRI [Suspect]
     Indication: MULTIPLE SCLEROSIS
     Route: 042
     Dates: start: 20120213
  2. CLONAZEPAM [Concomitant]
     Indication: INITIAL INSOMNIA
  3. CLONAZEPAM [Concomitant]
     Indication: MIDDLE INSOMNIA
  4. METFORMIN [Concomitant]
     Indication: TYPE 2 DIABETES MELLITUS
     Dates: start: 2007
  5. LYRICA [Concomitant]
     Indication: FIBROMYALGIA
  6. LYRICA [Concomitant]
     Indication: DEPRESSION
  7. ZOLOFT [Concomitant]
     Indication: DEPRESSION
  8. BENZTEROPINE (NOS) [Concomitant]
     Indication: MALIGNANT HYPERTENSION
  9. CLONIDINE [Concomitant]
     Indication: MALIGNANT HYPERTENSION
  10. DIOVAN HCT [Concomitant]
     Indication: MALIGNANT HYPERTENSION
  11. LABETALOL [Concomitant]
     Indication: MALIGNANT HYPERTENSION
  12. MINOXIDIL [Concomitant]
     Indication: MALIGNANT HYPERTENSION
  13. TERAZOSIN [Concomitant]
     Indication: MALIGNANT HYPERTENSION
  14. IBUPROFEN [Concomitant]
     Indication: MIGRAINE
  15. LYRICA [Concomitant]
     Indication: PAIN
  16. MUSCLE RELAXER (NOS) [Concomitant]
     Indication: PAIN
  17. VIMPAT [Concomitant]
     Indication: PAIN

REACTIONS (1)
  - Convulsion [Recovered/Resolved]
